FAERS Safety Report 12293960 (Version 4)
Quarter: 2016Q3

REPORT INFORMATION
  Report Type: Spontaneous
  Country: HU (occurrence: HU)
  Receive Date: 20160422
  Receipt Date: 20160809
  Transmission Date: 20161109
  Serious: Yes (Other)
  Sender: FDA-Public Use
  Company Number: HU-AMGEN-HUNSP2016050114

PATIENT
  Age: 45 Year
  Sex: Female
  Weight: 100 kg

DRUGS (7)
  1. MEDROL [Concomitant]
     Active Substance: METHYLPREDNISOLONE
     Indication: RHEUMATOID ARTHRITIS
     Dosage: 4 MG, 1 IN THE MORNING STARTED 7 YEARS AGO
     Dates: start: 2009
  2. VIDONORM [Concomitant]
     Indication: HYPERTENSION
     Dosage: 8 MG/5 MG, 1 TABLET IN THE MORNING, STARTED 3 YEARS AGO
     Dates: start: 2013
  3. ENBREL [Suspect]
     Active Substance: ETANERCEPT
     Dosage: 50 MG, WEEKLY 1X1 (TUESDAY)
     Route: 058
     Dates: start: 20160119
  4. DELAGIL [Concomitant]
     Indication: RHEUMATOID ARTHRITIS
     Dosage: UNK, 1 TABLET IN THE MORNING, STARTED 3 YEARS AGO
     Dates: start: 2013
  5. ENBREL [Suspect]
     Active Substance: ETANERCEPT
     Indication: RHEUMATOID ARTHRITIS
     Dosage: 50 MG, WEEKLY 1X1 (TUESDAY)
     Route: 058
     Dates: start: 20151027, end: 20160405
  6. EUTHYROX [Concomitant]
     Active Substance: LEVOTHYROXINE SODIUM
     Indication: THYROID DISORDER
     Dosage: 125 MG, 1 TABLET IN THE MORNING, STARTED 10 YEARS AGO
     Dates: start: 2006
  7. FRONTIN [Concomitant]
     Active Substance: ALPRAZOLAM
     Indication: SUPPLEMENTATION THERAPY
     Dosage: 0.25 MG, 2X1 TABLET, STARTED 3 YEARS AGO
     Dates: start: 2013

REACTIONS (3)
  - Rheumatoid arthritis [Not Recovered/Not Resolved]
  - Condition aggravated [Not Recovered/Not Resolved]
  - Drug ineffective [Not Recovered/Not Resolved]

NARRATIVE: CASE EVENT DATE: 2016
